FAERS Safety Report 13277121 (Version 1)
Quarter: 2017Q1

REPORT INFORMATION
  Report Type: Spontaneous
  Country: US (occurrence: US)
  Receive Date: 20170228
  Receipt Date: 20170228
  Transmission Date: 20170428
  Serious: No
  Sender: FDA-Public Use
  Company Number: US-BAYER-2017-038744

PATIENT
  Age: 81 Year
  Sex: Male
  Weight: 77.96 kg

DRUGS (2)
  1. MIRALAX [Suspect]
     Active Substance: POLYETHYLENE GLYCOL 3350
     Indication: GASTROINTESTINAL DISORDER
     Dosage: JUST LESS THAN 1 DOSE
     Route: 048
  2. ACIDOPHILUS [Concomitant]
     Active Substance: LACTOBACILLUS ACIDOPHILUS
     Dosage: UNK

REACTIONS (3)
  - Product use issue [Unknown]
  - Diarrhoea [Recovered/Resolved]
  - Expired product administered [Unknown]
